FAERS Safety Report 24534408 (Version 1)
Quarter: 2024Q4

REPORT INFORMATION
  Report Type: Report from Study
  Country: US (occurrence: US)
  Receive Date: 20241022
  Receipt Date: 20241022
  Transmission Date: 20250115
  Serious: Yes (Other)
  Sender: JAZZ
  Company Number: US-JAZZ PHARMACEUTICALS-2024-US-004174

PATIENT
  Age: 50 Year
  Sex: Female
  Weight: 83.447 kg

DRUGS (5)
  1. SODIUM OXYBATE [Suspect]
     Active Substance: SODIUM OXYBATE
     Indication: Narcolepsy
     Dosage: 2.25 GRAM, BID
  2. SODIUM OXYBATE [Suspect]
     Active Substance: SODIUM OXYBATE
     Dosage: 3 GRAM, BID
     Dates: start: 20240207, end: 20240423
  3. SODIUM OXYBATE [Suspect]
     Active Substance: SODIUM OXYBATE
     Dosage: 1.25 GRAM
  4. SODIUM OXYBATE [Suspect]
     Active Substance: SODIUM OXYBATE
     Dosage: UNK
  5. ATORVASTATIN [Concomitant]
     Active Substance: ATORVASTATIN
     Indication: Blood cholesterol increased
     Dosage: UNK
     Dates: start: 20240313

REACTIONS (10)
  - Bladder operation [Unknown]
  - Weight decreased [Recovering/Resolving]
  - Enuresis [Unknown]
  - Dehydration [Unknown]
  - Thirst [Unknown]
  - Abnormal dreams [Unknown]
  - Dry mouth [Unknown]
  - Bruxism [Unknown]
  - Paranoia [Unknown]
  - Hypertension [Unknown]

NARRATIVE: CASE EVENT DATE: 20240306
